FAERS Safety Report 23334561 (Version 1)
Quarter: 2023Q4

REPORT INFORMATION
  Report Type: Other
  Country: NL (occurrence: NL)
  Receive Date: 20231224
  Receipt Date: 20231224
  Transmission Date: 20240110
  Serious: Yes (Other)
  Sender: FDA-Public Use
  Company Number: NL-GLENMARK PHARMACEUTICALS-2023GMK087362

PATIENT

DRUGS (9)
  1. ROSUVASTATIN CALCIUM [Suspect]
     Active Substance: ROSUVASTATIN CALCIUM
     Indication: Hypercholesterolaemia
     Dosage: 10 MILLIGRAM, OD, 1 DD 1 TABLET
     Route: 065
     Dates: start: 20220531, end: 20230801
  2. METRONIDAZOLE [Concomitant]
     Active Substance: METRONIDAZOLE
     Indication: Product used for unknown indication
     Dosage: 1 DOSAGE FORM, BRENG AAN OP DE HUID ZO NODIG
     Route: 065
  3. CHOLECALCIFEROL [Concomitant]
     Active Substance: CHOLECALCIFEROL
     Indication: Product used for unknown indication
     Dosage: 5600 INTERNATIONAL UNIT, QW, (STRENGTH: 5600 IE), CAPSULE NEEM 1 CAPSULE IN VIA DE MOND 1X PER WEEK
     Route: 065
  4. OMEPRAZOLE [Concomitant]
     Active Substance: OMEPRAZOLE
     Indication: Product used for unknown indication
     Dosage: 40 MILLIGRAM, OD, NEEM 1 CAPSULE IN VIA DE MOND DAGELIJK
     Route: 065
  5. CITALOPRAM [Concomitant]
     Active Substance: CITALOPRAM HYDROBROMIDE
     Indication: Product used for unknown indication
     Dosage: 40 MILLIGRAM, OD, EEM 40 MG IN VIA DE MOND ELKE OCHTEND TIJDENS HET ONTBIJT.
     Route: 065
  6. TRESIBA [Concomitant]
     Active Substance: INSULIN DEGLUDEC
     Indication: Product used for unknown indication
     Dosage: 72 INTERNATIONAL UNIT, OD, 72 EENHEDEN IN DE AVOND 20.00, (200E/ML INJVLST)
     Route: 065
  7. NOVORAPID [Concomitant]
     Active Substance: INSULIN ASPART
     Indication: Product used for unknown indication
     Dosage: 16 INTERNATIONAL UNIT (8 HOURS), 16 EENHEDEN 3 KEER PER DAG TIJDENS DE MAALTIJD , (INJVLST 100E/ML)
     Route: 065
  8. ASPIRIN [Concomitant]
     Active Substance: ASPIRIN
     Indication: Product used for unknown indication
     Dosage: 80 MILLIGRAM, OD, NEEM 80 MG IN VIA DE MOND ELKE OCHTEND TIJDENS HET ONTBIJT
     Route: 065
  9. NITROGLYCERIN [Concomitant]
     Active Substance: NITROGLYCERIN
     Indication: Product used for unknown indication
     Dosage: 1 DOSAGE FORM, 1 SPRAY ZONODIG VOOR PIJN OP DE BORST.
     Route: 065

REACTIONS (1)
  - Syncope [Recovered/Resolved]
